FAERS Safety Report 9109565 (Version 1)
Quarter: 2013Q1

REPORT INFORMATION
  Report Type: Spontaneous
  Country: US (occurrence: US)
  Receive Date: 20130222
  Receipt Date: 20130222
  Transmission Date: 20140127
  Serious: No
  Sender: FDA-Public Use
  Company Number: US-TEVA-354243USA

PATIENT
  Sex: Female

DRUGS (2)
  1. TREANDA [Suspect]
     Route: 042
     Dates: start: 20120806
  2. RITUXAN [Concomitant]
     Dates: start: 20120806

REACTIONS (5)
  - Cough [Recovering/Resolving]
  - Nasal congestion [Recovering/Resolving]
  - Asthenia [Not Recovered/Not Resolved]
  - Fatigue [Not Recovered/Not Resolved]
  - Pyrexia [Recovered/Resolved]
